FAERS Safety Report 5658479-3 (Version None)
Quarter: 2008Q1

REPORT INFORMATION
  Report Type: 
  Country: None (occurrence: None)
  Receive Date: 20080310
  Receipt Date: 20070430
  Transmission Date: 20080703
  Serious: Yes (Other)
  Sender: FDA-Public Use
  Company Number: US-BAYER-200710570BCC

PATIENT
  Age: 26 Year
  Sex: Female
  Weight: 51 kg

DRUGS (6)
  1. MIDOL [Suspect]
     Indication: DYSMENORRHOEA
     Dosage: UNIT DOSE: 220 MG
     Route: 048
     Dates: start: 20070216
  2. MIDOL [Suspect]
     Dosage: TOTAL DAILY DOSE: 220 MG  UNIT DOSE: 220 MG
     Route: 048
     Dates: start: 20070217
  3. MIDOL [Suspect]
     Dosage: UNIT DOSE: 220 MG
     Route: 048
     Dates: start: 20070218
  4. MIDOL [Suspect]
     Dosage: TOTAL DAILY DOSE: 220 MG  UNIT DOSE: 220 MG
     Route: 048
     Dates: start: 20070219
  5. PROVENTIL [Concomitant]
  6. SINGULAIR [Concomitant]

REACTIONS (5)
  - ABDOMINAL PAIN [None]
  - EATING DISORDER [None]
  - FAECES DISCOLOURED [None]
  - HAEMORRHAGE [None]
  - MELAENA [None]
